FAERS Safety Report 17975478 (Version 2)
Quarter: 2020Q3

REPORT INFORMATION
  Report Type: Report from Study
  Country: FR (occurrence: FR)
  Receive Date: 20200702
  Receipt Date: 20200720
  Transmission Date: 20201103
  Serious: Yes (Life-Threatening, Hospitalization)
  Sender: FDA-Public Use
  Company Number: FR-SAMSUNG BIOEPIS-SB-2020-20231

PATIENT
  Age: 64 Year
  Sex: Female

DRUGS (4)
  1. IMRALDI [Suspect]
     Active Substance: ADALIMUMAB
     Indication: CROHN^S DISEASE
     Route: 058
     Dates: start: 20191009, end: 20200304
  2. ELIQUIS [Concomitant]
     Active Substance: APIXABAN
     Indication: PRODUCT USED FOR UNKNOWN INDICATION
     Route: 065
  3. ELIQUIS [Concomitant]
     Active Substance: APIXABAN
     Dosage: MINIMUM DURATION OF SIX MONTHS
     Route: 065
  4. IMRALDI [Suspect]
     Active Substance: ADALIMUMAB
     Route: 058
     Dates: start: 20200506

REACTIONS (12)
  - Pulmonary infarction [Recovered/Resolved]
  - Deep vein thrombosis [Recovered/Resolved]
  - Hydrocholecystis [Not Recovered/Not Resolved]
  - Suspected COVID-19 [Recovered/Resolved]
  - Pneumonia [Recovered/Resolved]
  - Haemangioma [Not Recovered/Not Resolved]
  - Pulmonary hypertension [Recovered/Resolved]
  - Cholelithiasis [Recovered/Resolved]
  - Bronchiectasis [Not Recovered/Not Resolved]
  - Pulmonary embolism [Recovered/Resolved]
  - Crohn^s disease [Recovered/Resolved]
  - Phlebitis [Recovered/Resolved]

NARRATIVE: CASE EVENT DATE: 20200304
